FAERS Safety Report 5176338-X (Version None)
Quarter: 2006Q4

REPORT INFORMATION
  Report Type: 
  Country: None (occurrence: None)
  Receive Date: 20061207
  Receipt Date: 20061128
  Transmission Date: 20070319
  Serious: Yes (Hospitalization)
  Sender: FDA-Public Use
  Company Number: 2006US002748

PATIENT
  Sex: Female

DRUGS (1)
  1. VESICARE [Suspect]
     Indication: HYPERTONIC BLADDER
     Dosage: 5 MG, UNK; ORAL
     Route: 048
     Dates: start: 20061001

REACTIONS (3)
  - ANGIONEUROTIC OEDEMA [None]
  - LIP SWELLING [None]
  - RESPIRATORY DISTRESS [None]
